FAERS Safety Report 23320819 (Version 1)
Quarter: 2023Q4

REPORT INFORMATION
  Report Type: Spontaneous
  Country: CZ (occurrence: CZ)
  Receive Date: 20231220
  Receipt Date: 20231220
  Transmission Date: 20240110
  Serious: Yes (Other)
  Sender: FDA-Public Use
  Company Number: None

PATIENT
  Age: 79 Year
  Sex: Female

DRUGS (1)
  1. LYRICA [Suspect]
     Active Substance: PREGABALIN
     Indication: Neuralgia
     Dosage: 150 MILLIGRAM, BID (2X PER DAY)
     Route: 065
     Dates: start: 2021

REACTIONS (34)
  - Arrhythmia [Unknown]
  - Confusional state [Unknown]
  - Blood potassium decreased [Unknown]
  - Hypertension [Unknown]
  - Balance disorder [Unknown]
  - Dizziness [Unknown]
  - Vision blurred [Unknown]
  - Dyspepsia [Unknown]
  - Action tremor [Unknown]
  - Retching [Unknown]
  - Feeling drunk [Unknown]
  - Back pain [Unknown]
  - Peripheral coldness [Unknown]
  - Insomnia [Unknown]
  - Muscle spasms [Unknown]
  - Hypoaesthesia [Unknown]
  - Dry mouth [Unknown]
  - Dry eye [Unknown]
  - Myalgia [Unknown]
  - Burning sensation [Unknown]
  - Feeling abnormal [Unknown]
  - Arthralgia [Unknown]
  - Flatulence [Unknown]
  - Tremor [Unknown]
  - Joint swelling [Unknown]
  - Pruritus [Unknown]
  - Fatigue [Unknown]
  - Pain in extremity [Unknown]
  - Decreased appetite [Unknown]
  - Muscle twitching [Unknown]
  - Dyskinesia [Unknown]
  - Paraesthesia [Unknown]
  - Gait disturbance [Unknown]
  - Somnolence [Unknown]
